FAERS Safety Report 13611235 (Version 1)
Quarter: 2017Q2

REPORT INFORMATION
  Report Type: Spontaneous
  Country: US (occurrence: US)
  Receive Date: 20170604
  Receipt Date: 20170604
  Transmission Date: 20170830
  Serious: Yes (Disabling, Other)
  Sender: FDA-Public Use
  Company Number: None

PATIENT
  Age: 54 Year
  Sex: Female
  Weight: 73.8 kg

DRUGS (18)
  1. ADVAIR HFA [Concomitant]
     Active Substance: FLUTICASONE PROPIONATE\SALMETEROL XINAFOATE
  2. SIMBRINZA [Concomitant]
     Active Substance: BRIMONIDINE TARTRATE\BRINZOLAMIDE
  3. CELEBREX [Concomitant]
     Active Substance: CELECOXIB
  4. LUMIGAN [Concomitant]
     Active Substance: BIMATOPROST
  5. ELMIRON [Concomitant]
     Active Substance: PENTOSAN POLYSULFATE SODIUM
  6. BOFLEX [Concomitant]
  7. LEVOFLOXIN [Suspect]
     Active Substance: LEVOFLOXACIN
     Indication: SINUSITIS
     Dosage: ?          QUANTITY:14 TABLET(S);?
     Route: 048
     Dates: start: 20170512, end: 20170522
  8. SINGULAIR [Concomitant]
     Active Substance: MONTELUKAST SODIUM
  9. ZYRTEC [Concomitant]
     Active Substance: CETIRIZINE HYDROCHLORIDE
  10. ULTRAM [Concomitant]
     Active Substance: TRAMADOL HYDROCHLORIDE
  11. VALIUM [Concomitant]
     Active Substance: DIAZEPAM
  12. YRICA [Concomitant]
  13. DEXILANT [Concomitant]
     Active Substance: DEXLANSOPRAZOLE
  14. DILAUDID [Concomitant]
     Active Substance: HYDROMORPHONE HYDROCHLORIDE
  15. DILTIAZEM. [Concomitant]
     Active Substance: DILTIAZEM
  16. LEVOFLOXIN [Suspect]
     Active Substance: LEVOFLOXACIN
     Indication: SINUS OPERATION
     Dosage: ?          QUANTITY:14 TABLET(S);?
     Route: 048
     Dates: start: 20170512, end: 20170522
  17. AMP PK [Concomitant]
  18. METAMUCIL [Concomitant]
     Active Substance: PLANTAGO SEED

REACTIONS (2)
  - Tendonitis [None]
  - Arthralgia [None]

NARRATIVE: CASE EVENT DATE: 20170521
